FAERS Safety Report 14093891 (Version 2)
Quarter: 2019Q2

REPORT INFORMATION
  Report Type: Spontaneous
  Country: CA (occurrence: CA)
  Receive Date: 20171016
  Receipt Date: 20190607
  Transmission Date: 20190711
  Serious: Yes (Other)
  Sender: FDA-Public Use
  Company Number: CA-PFIZER INC-2017442884

PATIENT
  Sex: Female

DRUGS (2)
  1. PALBOCICLIB [Suspect]
     Active Substance: PALBOCICLIB
  2. LETROZOLE. [Suspect]
     Active Substance: LETROZOLE

REACTIONS (5)
  - CSF virus identified [Unknown]
  - Headache [Unknown]
  - Asthenia [Unknown]
  - CSF white blood cell count increased [Unknown]
  - CSF protein increased [Unknown]

NARRATIVE: CASE EVENT DATE: 201705
